FAERS Safety Report 19893046 (Version 1)
Quarter: 2021Q3

REPORT INFORMATION
  Report Type: Spontaneous
  Country: US (occurrence: US)
  Receive Date: 20210929
  Receipt Date: 20210929
  Transmission Date: 20211014
  Serious: Yes (Other)
  Sender: FDA-Public Use
  Company Number: US-BION-010052

PATIENT

DRUGS (1)
  1. POTASSIUM CITRATE 15MEQ [Suspect]
     Active Substance: POTASSIUM CITRATE
     Indication: PRODUCT USED FOR UNKNOWN INDICATION
     Dosage: STRENGTH: 15MEQ

REACTIONS (2)
  - Dysphagia [Unknown]
  - Product size issue [Unknown]
